FAERS Safety Report 16442530 (Version 18)
Quarter: 2022Q4

REPORT INFORMATION
  Report Type: Report from Study
  Country: US (occurrence: US)
  Receive Date: 20190617
  Receipt Date: 20221214
  Transmission Date: 20230113
  Serious: Yes (Hospitalization, Other)
  Sender: FDA-Public Use
  Company Number: US-PFIZER INC-2016177750

PATIENT
  Age: 40 Year
  Sex: Male
  Weight: 110 kg

DRUGS (17)
  1. LYRICA [Suspect]
     Active Substance: PREGABALIN
     Indication: Partial seizures
     Dosage: 300 MILLIGRAM, BID (300 MG, 2X/DAY
     Route: 048
     Dates: start: 201301
  2. LYRICA [Suspect]
     Active Substance: PREGABALIN
     Indication: Focal dyscognitive seizures
     Dosage: 300 MILLIGRAM, BID (300 MG, 2X/DAY)
     Route: 048
     Dates: start: 20160823, end: 20170823
  3. LYRICA [Suspect]
     Active Substance: PREGABALIN
     Indication: Epilepsy
     Dosage: 75 MILLIGRAM, BID (75 MG, 2X/DAY
     Route: 048
     Dates: start: 20181120, end: 2018
  4. LYRICA [Suspect]
     Active Substance: PREGABALIN
     Indication: Seizure
     Dosage: 300 MILLIGRAM, BID (300 MG, 2X/DAY)
     Route: 048
     Dates: start: 20190423, end: 2019
  5. LYRICA [Suspect]
     Active Substance: PREGABALIN
     Dosage: 150 MILLIGRAM, BID (150 MG, 2X/DAY)
     Route: 048
     Dates: start: 2019, end: 2019
  6. LYRICA [Suspect]
     Active Substance: PREGABALIN
     Dosage: 300 MILLIGRAM, BID (300 MG, 2X/DAY (MORNING AND AT NIGHT))
     Route: 048
     Dates: start: 2019, end: 2019
  7. LYRICA [Suspect]
     Active Substance: PREGABALIN
     Dosage: 300 MILLIGRAM, BID (300 MG, 2X/DAY(ONCE IN THE MORNING, ONCE AT NIGHT))
     Route: 048
     Dates: start: 20191003
  8. LYRICA [Suspect]
     Active Substance: PREGABALIN
     Dosage: 300 MILLIGRAM, BID (300 MG, 2X/DAY (TAKE 1 CAPSULE BY MOUTH 2 TIMES DAILY))
     Route: 048
  9. ESCITALOPRAM [Concomitant]
     Active Substance: ESCITALOPRAM OXALATE
     Indication: Anxiety
     Dosage: 10 MILLIGRAM, QD (10 MG, 1X/DAY)
     Route: 048
  10. ESCITALOPRAM [Concomitant]
     Active Substance: ESCITALOPRAM OXALATE
     Dosage: UNK
     Route: 065
     Dates: start: 201906
  11. TOPIRAMATE [Concomitant]
     Active Substance: TOPIRAMATE
     Indication: Seizure
     Dosage: 200 MILLIGRAM, BID (200 MG, 2X/DAY)
     Route: 048
  12. TOPIRAMATE [Concomitant]
     Active Substance: TOPIRAMATE
     Dosage: UNK
     Route: 065
     Dates: start: 201402
  13. LAMOTRIGINE [Concomitant]
     Active Substance: LAMOTRIGINE
     Indication: Anxiety
     Dosage: 200 MILLIGRAM, BID (200 MG, 2X/DAY)
     Route: 048
  14. LAMOTRIGINE [Concomitant]
     Active Substance: LAMOTRIGINE
     Dosage: UNK
     Route: 065
     Dates: start: 201402
  15. CANNABIDIOL [Concomitant]
     Active Substance: CANNABIDIOL
     Indication: Anxiety
     Dosage: 500 MILLIGRAM, BID (500 MG, 2X/DAY (ONE DROP IN THE MORNING AND BEFORE GOING TO BED))
     Route: 048
  16. CANNABIDIOL [Concomitant]
     Active Substance: CANNABIDIOL
     Dosage: UNK
     Route: 065
  17. CANNABIDIOL\HERBALS [Concomitant]
     Active Substance: CANNABIDIOL\HERBALS
     Indication: Product used for unknown indication
     Dosage: UNK
     Route: 048
     Dates: start: 201602

REACTIONS (7)
  - Dysphonia [Not Recovered/Not Resolved]
  - Cardiac failure [Unknown]
  - Influenza [Unknown]
  - Vocal cord disorder [Unknown]
  - Middle insomnia [Unknown]
  - Poor quality sleep [Unknown]
  - Visual impairment [Not Recovered/Not Resolved]

NARRATIVE: CASE EVENT DATE: 20160601
